FAERS Safety Report 10269722 (Version 1)
Quarter: 2014Q2

REPORT INFORMATION
  Report Type: Spontaneous
  Country: US (occurrence: None)
  Receive Date: 20140626
  Receipt Date: 20140626
  Transmission Date: 20141212
  Serious: Yes (Disabling, Other)
  Sender: FDA-Public Use
  Company Number: None

PATIENT
  Age: 32 Year
  Sex: Female
  Weight: 113.4 kg

DRUGS (1)
  1. NEUTROGENA ON THE-SPOT ACNE TREATMENT VANISHING [Suspect]
     Indication: ACNE
     Dosage: AFFECTED AREA AS NEEDED APPLIED TO A SURFACE, USUALLY THE SKIN
     Route: 058
     Dates: start: 20140623, end: 20140623

REACTIONS (2)
  - Eye swelling [None]
  - Eye infection [None]
